FAERS Safety Report 4576121-X (Version None)
Quarter: 2005Q1

REPORT INFORMATION
  Report Type: 
  Country: None (occurrence: None)
  Receive Date: 20050209
  Receipt Date: 20050128
  Transmission Date: 20050727
  Serious: Yes (Hospitalization)
  Sender: FDA-Public Use
  Company Number: US-JNJFOC-20041204246

PATIENT
  Age: 77 Year
  Sex: Male
  Weight: 68.04 kg

DRUGS (2)
  1. REMICADE [Suspect]
     Indication: RHEUMATOID ARTHRITIS
     Dosage: ON INFLIXIMAB FOR 6 TO 7 MONTHS.
     Route: 042
  2. ARAVA [Concomitant]
     Indication: RHEUMATOID ARTHRITIS

REACTIONS (13)
  - ANAEMIA [None]
  - BACTERIAL PERICARDITIS [None]
  - COAGULOPATHY [None]
  - COLITIS [None]
  - HEPATIC FAILURE [None]
  - HEPATITIS [None]
  - INFLUENZA LIKE ILLNESS [None]
  - ISCHAEMIC HEPATITIS [None]
  - LEUKOCYTOSIS [None]
  - PERICARDIAL EFFUSION [None]
  - RENAL FAILURE ACUTE [None]
  - STAPHYLOCOCCAL INFECTION [None]
  - VASCULITIS [None]
